FAERS Safety Report 18313326 (Version 1)
Quarter: 2020Q3

REPORT INFORMATION
  Report Type: Spontaneous
  Country: US (occurrence: US)
  Receive Date: 20200925
  Receipt Date: 20200925
  Transmission Date: 20201103
  Serious: Yes (Hospitalization, Other)
  Sender: FDA-Public Use
  Company Number: US-PURDUE PHARMA-USA-2020-0152595

PATIENT
  Sex: Male

DRUGS (4)
  1. OXYCODONE HYDROCHLORIDE (SIMILAR TO NDA 22?272) [Suspect]
     Active Substance: OXYCODONE HYDROCHLORIDE
     Indication: PRODUCT USED FOR UNKNOWN INDICATION
     Dosage: UNK MG, UNK
     Route: 048
  2. MORPHINE SULFATE (SIMILAR TO NDA 19?516) [Suspect]
     Active Substance: MORPHINE SULFATE
     Indication: PAIN
     Dosage: UNK
     Route: 048
  3. OXYCONTIN [Suspect]
     Active Substance: OXYCODONE HYDROCHLORIDE
     Indication: PAIN
     Dosage: UNK
     Route: 048
  4. OXYCODONE HCL CR TABLETS (SIMILAR TO NDA 22?272) [Suspect]
     Active Substance: OXYCODONE HYDROCHLORIDE
     Indication: BREAKTHROUGH PAIN
     Dosage: UNK
     Route: 048

REACTIONS (17)
  - Surgery [Unknown]
  - Oedema peripheral [Unknown]
  - Confusional state [Unknown]
  - Overdose [Unknown]
  - Knee arthroplasty [Unknown]
  - Sleep apnoea syndrome [Unknown]
  - Fear [Unknown]
  - Mobility decreased [Unknown]
  - Drug dependence [Unknown]
  - Mental impairment [Unknown]
  - Spinal cord operation [Unknown]
  - Cardiac failure congestive [Unknown]
  - Weight increased [Unknown]
  - Product prescribing issue [Unknown]
  - General physical condition abnormal [Unknown]
  - Road traffic accident [Unknown]
  - Unevaluable event [Unknown]
